FAERS Safety Report 25274049 (Version 1)
Quarter: 2025Q2

REPORT INFORMATION
  Report Type: Spontaneous
  Country: US (occurrence: None)
  Receive Date: 20250506
  Receipt Date: 20250506
  Transmission Date: 20250717
  Serious: No
  Sender: FDA-CTU
  Company Number: None

PATIENT
  Sex: Male
  Weight: 89.55 kg

DRUGS (2)
  1. MOUNJARO [Suspect]
     Active Substance: TIRZEPATIDE
     Route: 058
  2. MOUNJARO [Concomitant]
     Active Substance: TIRZEPATIDE
     Dates: start: 20240909, end: 20250201

REACTIONS (3)
  - Muscular weakness [None]
  - Pain in extremity [None]
  - Gait disturbance [None]
